FAERS Safety Report 25442491 (Version 2)
Quarter: 2025Q3

REPORT INFORMATION
  Report Type: Spontaneous
  Country: JP (occurrence: JP)
  Receive Date: 20250617
  Receipt Date: 20250709
  Transmission Date: 20251020
  Serious: Yes (Hospitalization, Other)
  Sender: ASTELLAS
  Company Number: JP-ASTELLAS-2025-AER-007546

PATIENT
  Age: 73 Year
  Sex: Female
  Weight: 46 kg

DRUGS (25)
  1. VYLOY [Suspect]
     Active Substance: ZOLBETUXIMAB-CLZB
     Indication: Gastric cancer recurrent
     Route: 042
     Dates: start: 20241220, end: 20241220
  2. CAPECITABINE [Suspect]
     Active Substance: CAPECITABINE
     Indication: Gastric cancer recurrent
     Route: 048
     Dates: start: 20241220, end: 20250103
  3. OXALIPLATIN [Suspect]
     Active Substance: OXALIPLATIN
     Indication: Gastric cancer recurrent
     Route: 042
     Dates: start: 20241220, end: 20241220
  4. MIYA-BM [Concomitant]
     Active Substance: CLOSTRIDIUM BUTYRICUM SPORES STRAIN M-55
     Indication: Dysbiosis
     Route: 048
  5. TARLIGE OD TABLETS [Concomitant]
     Indication: Neuropathy peripheral
     Route: 048
  6. EDOXABAN TOSYLATE [Concomitant]
     Active Substance: EDOXABAN TOSYLATE
     Indication: Thrombosis prophylaxis
     Route: 048
  7. TSUMURA Juzentaihoto Extract Granules [Concomitant]
     Indication: Asthenia
     Route: 048
  8. Olmesartan OD Tablets [Concomitant]
     Indication: Hypertension
     Route: 048
  9. FUROSEMIDE [Concomitant]
     Active Substance: FUROSEMIDE
     Indication: Polyuria
     Route: 048
  10. PALONOSETRON INJECTION [TAIHO] [Concomitant]
     Indication: Vomiting
     Route: 042
     Dates: start: 20241220, end: 20241220
  11. AROKARIS INJECTION [Concomitant]
     Indication: Vomiting
     Route: 042
     Dates: start: 20241220, end: 20241220
  12. DECADRON [Concomitant]
     Active Substance: DEXAMETHASONE
     Indication: Vomiting
     Route: 042
     Dates: start: 20241220, end: 20241220
  13. POLARAMINE [Concomitant]
     Active Substance: DEXCHLORPHENIRAMINE MALEATE
     Indication: Allergy prophylaxis
     Route: 042
     Dates: start: 20241220, end: 20241220
  14. Gaster Injection [Concomitant]
     Indication: Allergy prophylaxis
     Route: 042
     Dates: start: 20241220, end: 20241220
  15. Water for Injection PL ^FUSO^ [Concomitant]
     Indication: Medication dilution
     Route: 042
     Dates: start: 20241220, end: 20241220
  16. DECADRON [Concomitant]
     Active Substance: DEXAMETHASONE
     Indication: Vomiting
     Route: 048
     Dates: start: 20241221, end: 20241223
  17. ISOTONIC SODIUM CHLORIDE SOLUTION [Concomitant]
     Active Substance: SODIUM CHLORIDE
     Indication: Medication dilution
     Route: 042
     Dates: start: 20241220, end: 20241220
  18. ABRAXANE [Concomitant]
     Active Substance: PACLITAXEL
     Indication: Product used for unknown indication
     Route: 065
  19. OPDIVO [Concomitant]
     Active Substance: NIVOLUMAB
     Indication: Product used for unknown indication
     Route: 065
  20. Lactec G infusion [Concomitant]
     Indication: Nutritional condition abnormal
     Route: 042
     Dates: start: 20250114, end: 20250127
  21. Lactec G infusion [Concomitant]
     Indication: Renal impairment
     Route: 042
  22. Physio 35 infusion [Concomitant]
     Indication: Nutritional condition abnormal
     Route: 042
     Dates: start: 20250115, end: 20250118
  23. Physio 35 infusion [Concomitant]
     Indication: Renal impairment
     Route: 042
  24. BFLUID infusion [Concomitant]
     Indication: Nutritional condition abnormal
     Route: 042
     Dates: start: 20250115, end: 20250127
  25. BFLUID infusion [Concomitant]
     Indication: Renal impairment
     Route: 042

REACTIONS (4)
  - Hypoalbuminaemia [Not Recovered/Not Resolved]
  - Disseminated intravascular coagulation [Not Recovered/Not Resolved]
  - Nutritional condition abnormal [Not Recovered/Not Resolved]
  - Renal impairment [Recovered/Resolved]

NARRATIVE: CASE EVENT DATE: 20250110
